FAERS Safety Report 12417684 (Version 16)
Quarter: 2018Q1

REPORT INFORMATION
  Report Type: Report from Study
  Country: BR (occurrence: BR)
  Receive Date: 20160530
  Receipt Date: 20180209
  Transmission Date: 20180508
  Serious: Yes (Other)
  Sender: FDA-Public Use
  Company Number: PHHY2016BR027947

PATIENT
  Age: 60 Year
  Sex: Female
  Weight: 100 kg

DRUGS (16)
  1. SANDOSTATIN LAR DEPOT [Suspect]
     Active Substance: OCTREOTIDE ACETATE
     Dosage: 40 MG, EVERY 15 DAYS (AMPOULE OF 20 MG)
     Route: 030
  2. ALENIA [Concomitant]
     Active Substance: BUDESONIDE\FORMOTEROL FUMARATE
     Indication: ASTHMA
     Dosage: 2 DF, QD
     Route: 055
  3. BUDESONIDE. [Concomitant]
     Active Substance: BUDESONIDE
     Indication: ASTHMA
     Dosage: 50 MG, QD
     Route: 055
  4. SANDOSTATIN LAR DEPOT [Suspect]
     Active Substance: OCTREOTIDE ACETATE
     Dosage: 1 DF (AMPOULE OF 30 MG), QMO
     Route: 030
     Dates: start: 201603
  5. HYDROCHLOROTHIAZIDE. [Concomitant]
     Active Substance: HYDROCHLOROTHIAZIDE
     Indication: HYPERTENSION
     Dosage: 1 DF, QD
     Route: 048
  6. HYDRALAZINE [Concomitant]
     Active Substance: HYDRALAZINE HYDROCHLORIDE
     Indication: HYPERTENSION
     Dosage: 2 DF, QD
     Route: 048
  7. SANDOSTATIN LAR DEPOT [Suspect]
     Active Substance: OCTREOTIDE ACETATE
     Dosage: 20 MG, EVERY 15 DAYS
     Route: 030
  8. HYDROCHLOROTHIAZIDE. [Concomitant]
     Active Substance: HYDROCHLOROTHIAZIDE
     Dosage: 2 DF, QD
     Route: 048
  9. VENALOT [Concomitant]
     Active Substance: COUMARIN\TROXERUTIN
     Indication: CARDIOVASCULAR DISORDER
     Dosage: 450 MG, UNK2 TABLETS (450 MG/50 MG)
     Route: 048
  10. SANDOSTATIN LAR DEPOT [Suspect]
     Active Substance: OCTREOTIDE ACETATE
     Dosage: 40 MG, QMO
     Route: 030
  11. APRESOLINE HYDROCHLORIDE [Concomitant]
     Active Substance: HYDRALAZINE HYDROCHLORIDE
     Indication: HYPERTENSION
     Dosage: 2 DF, UNK
     Route: 048
  12. SANDOSTATIN LAR DEPOT [Suspect]
     Active Substance: OCTREOTIDE ACETATE
     Indication: ACROMEGALY
     Dosage: 2 DF (AMPOULE OF 30 MG), QMO
     Route: 030
     Dates: start: 1996, end: 201512
  13. CABERGOLINE. [Concomitant]
     Active Substance: CABERGOLINE
     Indication: ACROMEGALY
     Dosage: 1 DF, QD
     Route: 048
  14. LOSARTAN POTASSIUM. [Concomitant]
     Active Substance: LOSARTAN POTASSIUM
     Indication: HYPERTENSION
     Dosage: 2 DF, QD
     Route: 048
  15. SANDOSTATIN LAR DEPOT [Suspect]
     Active Substance: OCTREOTIDE ACETATE
     Dosage: 2 DF (AMPOULE OF 20 MG), QMO
     Route: 030
     Dates: start: 2015
  16. SANDOSTATIN LAR DEPOT [Suspect]
     Active Substance: OCTREOTIDE ACETATE
     Dosage: 20 MG (OR 30 MG REMOVING 0.7 MG) EVERY 15 DAYS
     Route: 030

REACTIONS (24)
  - Cholelithiasis [Recovered/Resolved]
  - Hypothyroidism [Unknown]
  - Breast cancer [Unknown]
  - Injection site mass [Recovered/Resolved]
  - Product deposit [Unknown]
  - Headache [Recovered/Resolved]
  - Headache [Recovering/Resolving]
  - Underdose [Unknown]
  - Glaucoma [Unknown]
  - Glucose tolerance impaired [Unknown]
  - Injection site pain [Unknown]
  - Inappropriate schedule of drug administration [Unknown]
  - Nerve compression [Unknown]
  - Vision blurred [Recovering/Resolving]
  - Injection site pain [Recovered/Resolved]
  - Injection site nodule [Unknown]
  - Neoplasm progression [Unknown]
  - Eye pain [Unknown]
  - Malabsorption from injection site [Unknown]
  - Hormone level abnormal [Recovered/Resolved]
  - Diabetes mellitus [Recovering/Resolving]
  - Facial neuralgia [Unknown]
  - Poor quality drug administered [Unknown]
  - Injection site oedema [Unknown]

NARRATIVE: CASE EVENT DATE: 1996
